FAERS Safety Report 23400892 (Version 2)
Quarter: 2024Q1

REPORT INFORMATION
  Report Type: Report from Study
  Country: JP (occurrence: JP)
  Receive Date: 20240115
  Receipt Date: 20240301
  Transmission Date: 20240409
  Serious: Yes (Death)
  Sender: FDA-Public Use
  Company Number: JP-ORPHANEU-2024000095

PATIENT

DRUGS (14)
  1. ISTURISA [Suspect]
     Active Substance: OSILODROSTAT PHOSPHATE
     Indication: Cushing^s syndrome
     Dosage: 1 MILLIGRAM DAILY, QD
     Route: 065
     Dates: start: 20221110, end: 20221130
  2. ISTURISA [Suspect]
     Active Substance: OSILODROSTAT PHOSPHATE
     Dosage: 2 MILLIGRAM DAILY, BID
     Route: 065
     Dates: start: 20221201, end: 20221223
  3. ISTURISA [Suspect]
     Active Substance: OSILODROSTAT PHOSPHATE
     Dosage: 3 MILLIGRAM DAILY (MORNING 1 MG, NIGHT 2 MG), BID
     Route: 065
     Dates: start: 20221224, end: 20230117
  4. ISTURISA [Suspect]
     Active Substance: OSILODROSTAT PHOSPHATE
     Dosage: 4 MILLIGRAM DAILY, BID
     Route: 065
     Dates: start: 20230118, end: 20230214
  5. ISTURISA [Suspect]
     Active Substance: OSILODROSTAT PHOSPHATE
     Dosage: 5 MILLIGRAM, QD
     Route: 065
     Dates: start: 20230215, end: 20230317
  6. SULFAMETHOXAZOLE\TRIMETHOPRIM [Concomitant]
     Active Substance: SULFAMETHOXAZOLE\TRIMETHOPRIM
     Indication: Product used for unknown indication
     Dosage: STARTED BEFORE THE START OF ISTURISA
     Route: 048
     Dates: end: 20230317
  7. NIFEDIPINE [Concomitant]
     Active Substance: NIFEDIPINE
     Indication: Disease complication
     Dosage: STARTED BEFORE THE START OF ISTURISA
     Route: 048
     Dates: end: 20230317
  8. PITAVASTATIN CALCIUM [Concomitant]
     Active Substance: PITAVASTATIN CALCIUM
     Indication: Disease complication
     Dosage: STARTED BEFORE THE START OF ISTURISA
     Route: 048
     Dates: end: 20230317
  9. POTASSIUM ASPARTATE [Concomitant]
     Active Substance: POTASSIUM ASPARTATE
     Indication: Disease complication
     Dosage: STARTED BEFORE THE START OF ISTURISA
     Route: 048
     Dates: end: 20230317
  10. LINAGLIPTIN [Concomitant]
     Active Substance: LINAGLIPTIN
     Indication: Disease complication
     Dosage: 5 MILLIGRAM/DAY
     Route: 048
     Dates: start: 20230118, end: 20230317
  11. RABEPRAZOLE [Concomitant]
     Active Substance: RABEPRAZOLE
     Indication: Disease complication
     Dosage: 10 MILLIGRAM/DAY
     Route: 048
     Dates: start: 20230118, end: 20230317
  12. RABEPRAZOLE [Concomitant]
     Active Substance: RABEPRAZOLE
     Indication: Prophylaxis
  13. CISPLATIN [Concomitant]
     Active Substance: CISPLATIN
     Indication: Product used for unknown indication
     Dosage: STARTED BEFORE THE START OF ISTURISA
     Dates: end: 20221130
  14. ETOPOSIDE [Concomitant]
     Active Substance: ETOPOSIDE
     Indication: Product used for unknown indication
     Dosage: STARTED BEFORE THE START OF ISTURISA
     Dates: end: 20221130

REACTIONS (2)
  - Adrenal gland cancer [Fatal]
  - Off label use [Recovered/Resolved]

NARRATIVE: CASE EVENT DATE: 20221110
